FAERS Safety Report 4383976-0 (Version None)
Quarter: 2004Q2

REPORT INFORMATION
  Report Type: 
  Country: None (occurrence: None)
  Receive Date: 20040621
  Receipt Date: 20040611
  Transmission Date: 20050107
  Serious: Yes (Hospitalization)
  Sender: FDA-Public Use
  Company Number: PROG00204001570

PATIENT
  Age: 50 Year
  Sex: Female
  Weight: 90.7194 kg

DRUGS (11)
  1. PROMETRIUM [Suspect]
     Indication: HORMONE REPLACEMENT THERAPY
     Dosage: 200 MG QD PO
     Route: 048
     Dates: start: 20020101, end: 20040501
  2. PROMETRIUM [Suspect]
     Indication: HORMONE REPLACEMENT THERAPY
     Dosage: 200 MG QD PO
     Route: 048
     Dates: start: 20040513, end: 20040601
  3. ESTRATEST [Suspect]
     Indication: HORMONE REPLACEMENT THERAPY
     Dosage: 1 DF QD PO
     Route: 048
     Dates: start: 20020101, end: 20040501
  4. XANAX [Concomitant]
  5. PREMARIN [Concomitant]
  6. PREMARIN CREAM (ESTROGENS CONJUGATED) [Concomitant]
  7. ULTRACET (TRAMADOL) [Concomitant]
  8. GLUCOPHAGE [Concomitant]
  9. EFFEXOR [Concomitant]
  10. PROZAC [Concomitant]
  11. INSULIN ILETIN I REGULAR (INSULIN) [Concomitant]

REACTIONS (8)
  - ACNE [None]
  - BACTERIAL INFECTION [None]
  - BREAST PAIN [None]
  - CELLULITIS [None]
  - DRUG WITHDRAWAL SYNDROME [None]
  - EMOTIONAL DISORDER [None]
  - HYPERTROPHY BREAST [None]
  - SCAR [None]
